FAERS Safety Report 6736707-0 (Version None)
Quarter: 2010Q2

REPORT INFORMATION
  Report Type: 
  Country: None (occurrence: None)
  Receive Date: 20100521
  Receipt Date: 20100512
  Transmission Date: 20101027
  Serious: Yes (Hospitalization)
  Sender: FDA-Public Use
  Company Number: PHHO2010JP06899

PATIENT
  Sex: Male
  Weight: 54 kg

DRUGS (4)
  1. AIN457 AIN+INJ+PS [Suspect]
     Indication: PSORIASIS
     Dosage: DOUBLE BLIND
     Route: 058
     Dates: start: 20100105, end: 20100330
  2. DIOVAN [Suspect]
     Indication: HYPERTENSION
     Dosage: 80 MG/DAY
     Route: 048
     Dates: start: 20091112, end: 20100427
  3. CONIEL [Suspect]
     Indication: HYPERTENSION
     Dosage: 4 MG, BID
     Route: 048
     Dates: start: 20091028, end: 20100427
  4. ALESION [Concomitant]
     Indication: PSORIASIS
     Dosage: 20 MG
     Route: 048
     Dates: start: 20091007, end: 20100427

REACTIONS (15)
  - ALANINE AMINOTRANSFERASE INCREASED [None]
  - ASPARTATE AMINOTRANSFERASE INCREASED [None]
  - ASTHENIA [None]
  - BLOOD CREATINE PHOSPHOKINASE INCREASED [None]
  - DYSPNOEA [None]
  - ELECTROCARDIOGRAM T WAVE ABNORMAL [None]
  - ELECTROCARDIOGRAM T WAVE INVERSION [None]
  - MALAISE [None]
  - METABOLIC ACIDOSIS [None]
  - MYALGIA [None]
  - PAIN [None]
  - RESPIRATORY DISTRESS [None]
  - RESPIRATORY FAILURE [None]
  - RHABDOMYOLYSIS [None]
  - TACHYPNOEA [None]
